FAERS Safety Report 17376496 (Version 1)
Quarter: 2020Q1

REPORT INFORMATION
  Report Type: Spontaneous
  Country: US (occurrence: US)
  Receive Date: 20200122
  Receipt Date: 20200122
  Transmission Date: 20200409
  Serious: Yes (Hospitalization)
  Sender: FDA-Public Use
  Company Number: None

PATIENT
  Sex: Female

DRUGS (9)
  1. TRAMADOL. [Concomitant]
     Active Substance: TRAMADOL
  2. ELAVIL [Concomitant]
     Active Substance: AMITRIPTYLINE HYDROCHLORIDE
  3. LEVOXYL [Concomitant]
     Active Substance: LEVOTHYROXINE SODIUM
  4. LICOCAINE [Concomitant]
  5. PENNSAID [Concomitant]
     Active Substance: DICLOFENAC SODIUM
  6. BOTOX [Suspect]
     Active Substance: ONABOTULINUMTOXINA
     Indication: MIGRAINE
     Dosage: ?          OTHER STRENGTH:200 UNIT;OTHER DOSE:200 UNIT SDV;OTHER FREQUENCY:EVERY 90 DAYS;OTHER ROUTE:MD TO ADMINISTER?
     Dates: start: 20171031
  7. TOPAMAX [Concomitant]
     Active Substance: TOPIRAMATE
  8. PROTONIX [Concomitant]
     Active Substance: PANTOPRAZOLE SODIUM
  9. ZANAFLEX [Concomitant]
     Active Substance: TIZANIDINE HYDROCHLORIDE

REACTIONS (3)
  - Headache [None]
  - Cardiac operation [None]
  - Therapy cessation [None]
